FAERS Safety Report 6257257-4 (Version None)
Quarter: 2009Q3

REPORT INFORMATION
  Report Type: 
  Country: None (occurrence: None)
  Receive Date: 20090706
  Receipt Date: 20090624
  Transmission Date: 20100115
  Serious: Yes (Hospitalization)
  Sender: FDA-Public Use
  Company Number: FR-PFIZER INC-2009177595

PATIENT
  Age: 34 Year

DRUGS (10)
  1. VIRACEPT [Suspect]
     Indication: HIV INFECTION
     Dosage: UNK
     Route: 048
     Dates: start: 20000101, end: 20020101
  2. NORVIR [Suspect]
     Indication: HIV INFECTION
     Dosage: UNK
     Route: 048
     Dates: start: 20040517
  3. REYATAZ [Suspect]
     Indication: HIV INFECTION
     Dosage: UNK
     Route: 048
     Dates: start: 20070517
  4. ZIAGEN [Suspect]
     Indication: HIV INFECTION
     Dosage: UNK
     Route: 048
     Dates: start: 20020404
  5. KALETRA [Suspect]
     Indication: HIV INFECTION
     Dosage: UNK
     Route: 048
     Dates: start: 20020101, end: 20040101
  6. ZERIT [Suspect]
     Indication: HIV INFECTION
     Dosage: UNK
     Route: 048
     Dates: start: 19980101, end: 20020101
  7. SUSTIVA [Suspect]
     Indication: HIV INFECTION
     Dosage: UNK
     Route: 048
     Dates: start: 19980101, end: 20020101
  8. EPIVIR [Suspect]
     Indication: DRUG USE FOR UNKNOWN INDICATION
     Dosage: UNK
     Route: 048
     Dates: start: 19980101, end: 20020101
  9. VIDEX [Suspect]
     Indication: DRUG USE FOR UNKNOWN INDICATION
     Dosage: UNK
     Route: 048
     Dates: start: 19970101, end: 20020101
  10. RETROVIR [Suspect]
     Indication: DRUG USE FOR UNKNOWN INDICATION
     Dosage: UNK
     Route: 048
     Dates: start: 19970101, end: 19980101

REACTIONS (6)
  - DIABETES MELLITUS [None]
  - HAEMATEMESIS [None]
  - HEPATIC STEATOSIS [None]
  - LIPODYSTROPHY ACQUIRED [None]
  - NODULAR REGENERATIVE HYPERPLASIA [None]
  - VARICES OESOPHAGEAL [None]
